FAERS Safety Report 13219744 (Version 1)
Quarter: 2017Q1

REPORT INFORMATION
  Report Type: Other
  Country: US (occurrence: US)
  Receive Date: 20170210
  Receipt Date: 20170210
  Transmission Date: 20170428
  Serious: No
  Sender: FDA-Public Use
  Company Number: US-ACORDA-ACO_127954_2016

PATIENT
  Age: 47 Year
  Sex: Female

DRUGS (6)
  1. AMPYRA [Suspect]
     Active Substance: DALFAMPRIDINE
     Dosage: 10 MG, BID
     Route: 048
     Dates: start: 20160902
  2. AMPYRA [Suspect]
     Active Substance: DALFAMPRIDINE
     Indication: GAIT DISTURBANCE
     Dosage: 10 MG, BID
     Route: 048
     Dates: start: 201311, end: 201412
  3. OMEPRAZOLE. [Concomitant]
     Active Substance: OMEPRAZOLE
     Indication: PRODUCT USED FOR UNKNOWN INDICATION
     Dosage: 20 MG, QD
     Route: 065
  4. AMPYRA [Suspect]
     Active Substance: DALFAMPRIDINE
     Dosage: 10 MG, BID
     Route: 048
     Dates: start: 20160720, end: 20160831
  5. ONDANSETRON [Concomitant]
     Active Substance: ONDANSETRON
     Indication: PROPHYLAXIS OF NAUSEA AND VOMITING
     Dosage: 4 MG, Q 4-6 H PRN
     Route: 065
  6. LATANOPROST. [Concomitant]
     Active Substance: LATANOPROST
     Indication: PRODUCT USED FOR UNKNOWN INDICATION
     Dosage: 1 GTT IN EACH EYE, HS
     Route: 047

REACTIONS (9)
  - Bacterial test [Unknown]
  - Urine abnormality [Unknown]
  - Crystal urine [Unknown]
  - Urinary sediment present [Unknown]
  - Red blood cells urine positive [Unknown]
  - Urine leukocyte esterase positive [Unknown]
  - Haemoglobin urine [Unknown]
  - Protein urine present [Unknown]
  - White blood cells urine positive [Unknown]

NARRATIVE: CASE EVENT DATE: 20160803
